FAERS Safety Report 8879754 (Version 1)
Quarter: 2012Q4

REPORT INFORMATION
  Report Type: 
  Country: US (occurrence: US)
  Receive Date: 20121101
  Receipt Date: 20121101
  Transmission Date: 20130627
  Serious: Yes (Hospitalization)
  Sender: FDA-Public Use
  Company Number: US-JNJFOC-20121014120

PATIENT
  Sex: Male
  Weight: 81.65 kg

DRUGS (12)
  1. XARELTO [Suspect]
     Indication: CEREBROVASCULAR ACCIDENT PROPHYLAXIS
     Route: 048
     Dates: start: 2012, end: 201208
  2. XARELTO [Suspect]
     Indication: CEREBROVASCULAR ACCIDENT PROPHYLAXIS
     Route: 048
     Dates: start: 201008, end: 20121023
  3. XARELTO [Suspect]
     Indication: ATRIAL FIBRILLATION
     Route: 048
     Dates: start: 2012, end: 201208
  4. XARELTO [Suspect]
     Indication: ATRIAL FIBRILLATION
     Route: 048
     Dates: start: 201008, end: 20121023
  5. LISINOPRIL [Concomitant]
     Indication: HYPERTENSION
     Route: 048
  6. CARVEDILOL [Concomitant]
     Indication: CARDIAC DISORDER
     Route: 048
     Dates: start: 2007
  7. SPIRONOLACTONE [Concomitant]
     Indication: FLUID RETENTION
     Route: 048
  8. TORSEMIDE [Concomitant]
     Indication: DIABETES MELLITUS
     Route: 048
  9. GLIPIZIDE [Concomitant]
     Indication: DIABETES MELLITUS
     Route: 048
  10. PENTOXIFYLLINE [Concomitant]
     Route: 048
  11. SIMVASTATIN [Concomitant]
     Route: 048
     Dates: start: 201202
  12. ZOLPIDEM [Concomitant]
     Indication: SLEEP DISORDER

REACTIONS (5)
  - General physical health deterioration [Recovered/Resolved]
  - Adverse event [Not Recovered/Not Resolved]
  - Conduction disorder [Unknown]
  - Wrong technique in drug usage process [Recovered/Resolved]
  - Inappropriate schedule of drug administration [Recovered/Resolved]
